FAERS Safety Report 7339021-8 (Version None)
Quarter: 2011Q1

REPORT INFORMATION
  Report Type: 
  Country: None (occurrence: None)
  Receive Date: 20110301
  Receipt Date: 20110210
  Transmission Date: 20110831
  Serious: Yes (Death)
  Sender: FDA-Public Use
  Company Number: 2011000017

PATIENT
  Age: 19 Year
  Sex: Male

DRUGS (3)
  1. FENTANYL [Suspect]
  2. OXYCODONE (OXYCODONE) [Suspect]
  3. CHLORPHENIRAMINE, PHENYLEPHRINE (CHLORPHENIRAMINE, PHENYLEPHRINE) [Suspect]

REACTIONS (2)
  - RESPIRATORY ARREST [None]
  - CARDIAC ARREST [None]
